FAERS Safety Report 6791331-9 (Version None)
Quarter: 2010Q2

REPORT INFORMATION
  Report Type: 
  Country: None (occurrence: None)
  Receive Date: 20100624
  Receipt Date: 20090615
  Transmission Date: 20101027
  Serious: Yes (Other)
  Sender: FDA-Public Use
  Company Number: US-BAYER-200829335NA

PATIENT
  Age: 64 Year
  Sex: Male

DRUGS (11)
  1. MAGNEVIST [Suspect]
     Indication: DRUG USE FOR UNKNOWN INDICATION
     Dates: start: 20010131, end: 20010131
  2. MAGNEVIST [Suspect]
     Dates: start: 20030227, end: 20030227
  3. OMNISCAN [Suspect]
     Indication: DRUG USE FOR UNKNOWN INDICATION
     Dates: start: 20010131, end: 20010131
  4. OMNISCAN [Suspect]
     Dates: start: 20030227, end: 20030227
  5. OPTIMARK [Suspect]
     Indication: DRUG USE FOR UNKNOWN INDICATION
  6. MULTIHANCE [Suspect]
     Indication: DRUG USE FOR UNKNOWN INDICATION
  7. PROHANCE [Suspect]
     Indication: DRUG USE FOR UNKNOWN INDICATION
  8. LANOXIN [Concomitant]
     Dates: start: 20000101
  9. COUMADIN [Concomitant]
     Dates: start: 20030101
  10. NITROGLYCERIN [Concomitant]
     Dates: start: 20010101
  11. METOPROLOL [Concomitant]
     Dates: start: 20000101

REACTIONS (9)
  - ANXIETY [None]
  - EMOTIONAL DISTRESS [None]
  - GENERAL PHYSICAL HEALTH DETERIORATION [None]
  - INJURY [None]
  - MOBILITY DECREASED [None]
  - NEPHROGENIC SYSTEMIC FIBROSIS [None]
  - PAIN [None]
  - RASH [None]
  - SKIN LESION [None]
